FAERS Safety Report 18817620 (Version 4)
Quarter: 2021Q2

REPORT INFORMATION
  Report Type: Report from Study
  Country: None (occurrence: BR)
  Receive Date: 20210201
  Receipt Date: 20210414
  Transmission Date: 20210717
  Serious: Yes (Hospitalization)
  Sender: FDA-Public Use
  Company Number: BR-ABBVIE-21K-020-3751151-00

PATIENT
  Age: 47 Year
  Sex: Male
  Weight: 112 kg

DRUGS (3)
  1. SKYRIZI [Suspect]
     Active Substance: RISANKIZUMAB-RZAA
     Route: 058
     Dates: start: 2020, end: 202012
  2. SKYRIZI [Suspect]
     Active Substance: RISANKIZUMAB-RZAA
     Indication: PSORIASIS
     Dosage: LOADING DOSE ? WEEK 00
     Route: 058
     Dates: start: 20200819, end: 20200819
  3. SKYRIZI [Suspect]
     Active Substance: RISANKIZUMAB-RZAA
     Dosage: LOADING DOSE ? WEEK 04
     Route: 058
     Dates: start: 2020, end: 2020

REACTIONS (7)
  - Amylase abnormal [Recovered/Resolved]
  - Hypertension [Unknown]
  - Intentional product misuse [Unknown]
  - Gastroenteritis [Recovered/Resolved]
  - Pain [Unknown]
  - Lipase abnormal [Recovered/Resolved]
  - Hepatic steatosis [Recovering/Resolving]

NARRATIVE: CASE EVENT DATE: 202101
